FAERS Safety Report 6207177-6 (Version None)
Quarter: 2009Q2

REPORT INFORMATION
  Report Type: 
  Country: None (occurrence: None)
  Receive Date: 20090528
  Receipt Date: 20081202
  Transmission Date: 20091009
  Serious: Yes (Hospitalization)
  Sender: FDA-Public Use
  Company Number: US-PFIZER INC-2008100345

PATIENT
  Sex: Female
  Weight: 68 kg

DRUGS (6)
  1. SOLU-MEDROL [Suspect]
     Indication: MULTIPLE SCLEROSIS
     Dosage: 1000 MG, UNK
  2. REBIF [Suspect]
     Indication: MULTIPLE SCLEROSIS
     Dosage: 44 MCG THREE TIMES A WEEK
     Route: 058
     Dates: start: 20060101
  3. ALLERGY MEDICATION [Concomitant]
     Indication: CHRONIC SINUSITIS
     Dosage: UNK
     Route: 045
  4. ANTIHYPERTENSIVES [Concomitant]
     Indication: HYPERTENSION
  5. ALL OTHER THERAPEUTIC PRODUCTS [Concomitant]
  6. TYLENOL [Concomitant]
     Indication: PREMEDICATION
     Dosage: 3 EVERY 1 WEEKS

REACTIONS (5)
  - ATRIAL FIBRILLATION [None]
  - FATIGUE [None]
  - INJECTION SITE REACTION [None]
  - NEURALGIA [None]
  - SINUSITIS [None]
